FAERS Safety Report 7760401-0 (Version None)
Quarter: 2011Q3

REPORT INFORMATION
  Report Type: 
  Country: None (occurrence: None)
  Receive Date: 20110919
  Receipt Date: 20110916
  Transmission Date: 20111222
  Serious: Yes (Life-Threatening, Hospitalization)
  Sender: FDA-Public Use
  Company Number: PHHY2011FR82408

PATIENT
  Sex: Female

DRUGS (1)
  1. VOLTAREN [Suspect]
     Dosage: 75 MG, ONCE/SINGLE
     Route: 030
     Dates: start: 20110509

REACTIONS (7)
  - HAEMORRHAGIC DIATHESIS [None]
  - MALAISE [None]
  - HAEMORRHAGE [None]
  - RETROPERITONEAL HAEMORRHAGE [None]
  - DEEP VEIN THROMBOSIS [None]
  - PHLEBITIS [None]
  - ABDOMINAL PAIN [None]
